FAERS Safety Report 5888388-6 (Version None)
Quarter: 2008Q3

REPORT INFORMATION
  Report Type: 
  Country: None (occurrence: None)
  Receive Date: 20080918
  Receipt Date: 20080910
  Transmission Date: 20090109
  Serious: Yes (Hospitalization, Other)
  Sender: FDA-Public Use
  Company Number: GB-PFIZER INC-2005085084

PATIENT
  Age: 31 Year
  Sex: Male
  Weight: 101 kg

DRUGS (5)
  1. GENOTROPIN [Suspect]
     Indication: HYPOPITUITARISM
     Dosage: TEXT:0.2MG AND 0.3MG ON ALTERNATE DAYS-FREQ:DAILY
     Route: 058
     Dates: start: 19970729, end: 20050503
  2. HYDROCORTISONE [Concomitant]
     Route: 048
     Dates: start: 19950501
  3. LEVOTHYROXINE SODIUM [Concomitant]
     Route: 048
     Dates: start: 19960501
  4. TESTOSTERONE [Concomitant]
     Route: 030
     Dates: start: 19951001
  5. DHEA [Concomitant]
     Route: 048
     Dates: start: 20040401

REACTIONS (2)
  - NERVOUS SYSTEM DISORDER [None]
  - PITUITARY TUMOUR BENIGN [None]
